FAERS Safety Report 5379383-4 (Version None)
Quarter: 2007Q3

REPORT INFORMATION
  Report Type: 
  Country: None (occurrence: None)
  Receive Date: 20070703
  Receipt Date: 20070622
  Transmission Date: 20080115
  Serious: Yes (Other)
  Sender: FDA-Public Use
  Company Number: S07-USA-01860-01

PATIENT
  Age: 58 Year
  Sex: Female

DRUGS (5)
  1. LEXAPRO [Suspect]
     Indication: DEPRESSION
     Dosage: 20 MG QD PO
     Route: 048
     Dates: start: 20040119, end: 20070108
  2. CYMBALTA [Suspect]
     Indication: DEPRESSION
     Dosage: 60 MG PO
     Route: 048
     Dates: start: 20050801
  3. EFFEXOR [Suspect]
     Indication: DEPRESSION
     Dates: start: 19980601, end: 20050801
  4. XANAX [Suspect]
  5. EFFEXOR [Suspect]
     Indication: DEPRESSION
     Dosage: 300 MG QD
     Dates: start: 20070108

REACTIONS (5)
  - COMPLETED SUICIDE [None]
  - CONDITION AGGRAVATED [None]
  - DEPRESSION [None]
  - GUN SHOT WOUND [None]
  - INTENTIONAL SELF-INJURY [None]
